FAERS Safety Report 5463524-4 (Version None)
Quarter: 2007Q3

REPORT INFORMATION
  Report Type: 
  Country: None (occurrence: None)
  Receive Date: 20070920
  Receipt Date: 20070912
  Transmission Date: 20080115
  Serious: Yes (Other)
  Sender: FDA-Public Use
  Company Number: US-PFIZER INC-2007076563

PATIENT
  Sex: Female

DRUGS (2)
  1. DETROL [Suspect]
  2. LASIX [Suspect]
     Indication: CARDIAC FAILURE CONGESTIVE

REACTIONS (3)
  - CARDIAC FAILURE CONGESTIVE [None]
  - MICTURITION URGENCY [None]
  - POLLAKIURIA [None]
